FAERS Safety Report 9890934 (Version 1)
Quarter: 2014Q1

REPORT INFORMATION
  Report Type: Spontaneous
  Country: US (occurrence: None)
  Receive Date: 20140211
  Receipt Date: 20140211
  Transmission Date: 20141002
  Serious: No
  Sender: FDA-Public Use
  Company Number: None

PATIENT
  Sex: 0

DRUGS (1)
  1. MOEXIPRIL [Suspect]

REACTIONS (5)
  - Medication error [None]
  - Drug dispensing error [None]
  - Intercepted drug administration error [None]
  - Product size issue [None]
  - Product colour issue [None]
